FAERS Safety Report 4717066-1 (Version None)
Quarter: 2005Q3

REPORT INFORMATION
  Report Type: 
  Country: None (occurrence: None)
  Receive Date: 20050715
  Receipt Date: 20050704
  Transmission Date: 20060218
  Serious: Yes (Hospitalization, Other)
  Sender: FDA-Public Use
  Company Number: 2005097544

PATIENT
  Age: 7 Year
  Sex: Male

DRUGS (1)
  1. GENOTONORM (SOMATROPIN) [Suspect]
     Indication: HYPOPITUITARISM
     Dosage: 0.6 MG (DAILY), SUBCUTANEOUS
     Route: 058
     Dates: start: 20021107

REACTIONS (1)
  - GLOMERULONEPHRITIS FOCAL [None]
